FAERS Safety Report 26212705 (Version 1)
Quarter: 2025Q4

REPORT INFORMATION
  Report Type: Spontaneous
  Country: GB (occurrence: GB)
  Receive Date: 20251230
  Receipt Date: 20251230
  Transmission Date: 20260117
  Serious: Yes (Other)
  Sender: MYLAN
  Company Number: None

PATIENT
  Age: 67 Year
  Sex: Female

DRUGS (7)
  1. VENLAFAXINE [Interacting]
     Active Substance: VENLAFAXINE HYDROCHLORIDE
     Indication: Bipolar disorder
     Dosage: 300 MILLIGRAM, QD (DAILY)
     Dates: start: 20140421, end: 2024
  2. DATSCAN [Interacting]
     Active Substance: IODINE\IOFLUPANE I-123
     Indication: Parkinsonism
     Dosage: UNK
  3. LITHIUM [Concomitant]
     Active Substance: LITHIUM
     Indication: Bipolar disorder
     Dosage: UNK
  4. LAMOTRIGINE [Concomitant]
     Active Substance: LAMOTRIGINE
     Indication: Epilepsy
     Dosage: UNK
  5. PHENYTOIN [Concomitant]
     Active Substance: PHENYTOIN
     Dosage: UNK
  6. PHENYTOIN [Concomitant]
     Active Substance: PHENYTOIN
     Dosage: UNK
  7. QUETIAPINE [Concomitant]
     Active Substance: QUETIAPINE
     Indication: Bipolar disorder
     Dosage: UNK

REACTIONS (2)
  - Drug interaction [Not Recovered/Not Resolved]
  - Parkinsonism [Unknown]

NARRATIVE: CASE EVENT DATE: 20220501
